FAERS Safety Report 16304289 (Version 3)
Quarter: 2021Q1

REPORT INFORMATION
  Report Type: Spontaneous
  Country: CA (occurrence: CA)
  Receive Date: 20190513
  Receipt Date: 20210330
  Transmission Date: 20210419
  Serious: Yes (Hospitalization)
  Sender: FDA-Public Use
  Company Number: CA-PFIZER INC-2015389349

PATIENT
  Age: 78 Year
  Sex: Male

DRUGS (15)
  1. CLARITHROCIN [Interacting]
     Active Substance: CLARITHROMYCIN
     Indication: BRONCHITIS
     Dosage: UNK
  2. LACTULOSE. [Suspect]
     Active Substance: LACTULOSE
     Dosage: UNK
  3. PREDNISONE. [Interacting]
     Active Substance: PREDNISONE
     Dosage: UNK
  4. CICLOSPORIN [Interacting]
     Active Substance: CYCLOSPORINE
     Dosage: UNK
  5. DIGOXIN. [Suspect]
     Active Substance: DIGOXIN
     Dosage: UNK
  6. GLICLAZIDE [Interacting]
     Active Substance: GLICLAZIDE
     Dosage: UNK
  7. LOSARTAN. [Interacting]
     Active Substance: LOSARTAN
     Dosage: UNK
  8. VITAMIN D NOS [Suspect]
     Active Substance: VITAMIN D NOS
     Dosage: UNK
  9. LEVOTHYROXINE. [Interacting]
     Active Substance: LEVOTHYROXINE
     Dosage: UNK
  10. CLARITHROMYCIN. [Interacting]
     Active Substance: CLARITHROMYCIN
     Indication: BRONCHITIS
     Dosage: UNK
  11. GINGKO BILOBA [Interacting]
     Active Substance: GINKGO
     Indication: MEMORY IMPAIRMENT
     Dosage: UNK
  12. FUROSEMIDE. [Suspect]
     Active Substance: FUROSEMIDE
     Dosage: UNK
  13. CALCIUM CARBONATE. [Interacting]
     Active Substance: CALCIUM CARBONATE
     Dosage: UNK
  14. DONEPEZIL HCL [Interacting]
     Active Substance: DONEPEZIL HYDROCHLORIDE
     Dosage: UNK
  15. WARFARIN [Interacting]
     Active Substance: WARFARIN
     Dosage: UNK

REACTIONS (3)
  - Potentiating drug interaction [Unknown]
  - General physical health deterioration [Unknown]
  - Drug-disease interaction [Unknown]
